FAERS Safety Report 4319770-6 (Version None)
Quarter: 2004Q1

REPORT INFORMATION
  Report Type: 
  Country: None (occurrence: None)
  Receive Date: 20040319
  Receipt Date: 20040308
  Transmission Date: 20041129
  Serious: Yes (Hospitalization)
  Sender: FDA-Public Use
  Company Number: BE-GLAXOSMITHKLINE-B0326100A

PATIENT
  Age: 77 Year
  Sex: Male

DRUGS (3)
  1. AVANDIA [Suspect]
     Route: 065
     Dates: start: 20031201
  2. GLIQUIDONE [Concomitant]
     Dosage: 1TAB PER DAY
  3. FENOFIBRATE [Concomitant]

REACTIONS (5)
  - GINGIVAL BLEEDING [None]
  - MALAISE [None]
  - MYELODYSPLASTIC SYNDROME [None]
  - MYOCARDIAL INFARCTION [None]
  - THROMBOCYTOPENIA [None]
